FAERS Safety Report 10779265 (Version 2)
Quarter: 2015Q2

REPORT INFORMATION
  Report Type: Spontaneous
  Country: NL (occurrence: None)
  Receive Date: 20150206
  Receipt Date: 20150423
  Transmission Date: 20150821
  Serious: Yes (Death)
  Sender: FDA-Public Use
  Company Number: 2015NL001011

PATIENT
  Sex: Male

DRUGS (1)
  1. ELIGARD [Suspect]
     Active Substance: LEUPROLIDE ACETATE
     Indication: PROSTATE CANCER
     Dosage: 45 MG, ONE TIMES PER 6 MONTHS, SUBCUTANEOUS
     Route: 058
     Dates: start: 20130918, end: 20140917

REACTIONS (1)
  - Death [None]
